FAERS Safety Report 5872313-8 (Version None)
Quarter: 2008Q3

REPORT INFORMATION
  Report Type: 
  Country: None (occurrence: None)
  Receive Date: 20080905
  Receipt Date: 20080827
  Transmission Date: 20090109
  Serious: Yes (Hospitalization)
  Sender: FDA-Public Use
  Company Number: IT-SANOFI-SYNTHELABO-A06200800274

PATIENT
  Sex: Female

DRUGS (1)
  1. ELOXATIN [Suspect]
     Indication: BILIARY NEOPLASM
     Route: 041
     Dates: start: 20080424, end: 20080424

REACTIONS (5)
  - BLOOD CREATINE PHOSPHOKINASE INCREASED [None]
  - HYPOAESTHESIA [None]
  - HYPOKINESIA [None]
  - MUSCLE CONTRACTIONS INVOLUNTARY [None]
  - PAIN IN EXTREMITY [None]
